FAERS Safety Report 12495167 (Version 1)
Quarter: 2016Q2

REPORT INFORMATION
  Report Type: Report from Study
  Country: BR (occurrence: BR)
  Receive Date: 20160624
  Receipt Date: 20160624
  Transmission Date: 20160815
  Serious: Yes (Other)
  Sender: FDA-Public Use
  Company Number: PHHY2016BR085658

PATIENT
  Sex: Female

DRUGS (3)
  1. ONBREZ BREEZHALER [Suspect]
     Active Substance: INDACATEROL
     Indication: PRODUCT USED FOR UNKNOWN INDICATION
     Dosage: 150 UG, UNK
     Route: 055
  2. TRADJENTA [Suspect]
     Active Substance: LINAGLIPTIN
     Indication: MYOCARDIAL INFARCTION
  3. TRADJENTA [Suspect]
     Active Substance: LINAGLIPTIN
     Indication: DIABETES MELLITUS
     Dosage: UNK
     Route: 048

REACTIONS (5)
  - Diabetes mellitus [Unknown]
  - Alopecia [Unknown]
  - Myocardial infarction [Unknown]
  - Confusional state [Unknown]
  - Blood glucose decreased [Unknown]
